FAERS Safety Report 18309631 (Version 1)
Quarter: 2020Q3

REPORT INFORMATION
  Report Type: Spontaneous
  Country: US (occurrence: US)
  Receive Date: 20200925
  Receipt Date: 20200925
  Transmission Date: 20201103
  Serious: No
  Sender: FDA-Public Use
  Company Number: US-MTPC-MTDA2020-0063950

PATIENT
  Sex: Male

DRUGS (2)
  1. RADICAVA [Suspect]
     Active Substance: EDARAVONE
     Dosage: 60 MILLIGRAM, QD FOR 10 DAYS OUT OF 14?DAY PERIODS, FOLLOWED BY 14?DAY DRUG?FREE PERIODS
     Route: 042
  2. RADICAVA [Suspect]
     Active Substance: EDARAVONE
     Indication: AMYOTROPHIC LATERAL SCLEROSIS
     Dosage: 60 MILLIGRAM OVER 60 MINUTES, QD FOR 14 DAYS FOLLOWED BY A 14?DAY DRUG?FREE PERIOD
     Route: 042

REACTIONS (1)
  - Condition aggravated [Not Recovered/Not Resolved]
